FAERS Safety Report 24781186 (Version 2)
Quarter: 2025Q1

REPORT INFORMATION
  Report Type: Report from Study
  Country: NL (occurrence: NL)
  Receive Date: 20241227
  Receipt Date: 20250117
  Transmission Date: 20250409
  Serious: Yes (Death)
  Sender: ROCHE
  Company Number: NL-ROCHE-10000165169

PATIENT

DRUGS (4)
  1. VEMURAFENIB [Suspect]
     Active Substance: VEMURAFENIB
     Indication: Langerhans^ cell histiocytosis
     Route: 065
  2. COBIMETINIB [Suspect]
     Active Substance: COBIMETINIB
     Indication: Langerhans^ cell histiocytosis
     Route: 065
  3. PREDNISOLONE [Concomitant]
     Active Substance: PREDNISOLONE
  4. DABRAFENIB [Concomitant]
     Active Substance: DABRAFENIB

REACTIONS (5)
  - Neurodegenerative disorder [Unknown]
  - Photosensitivity reaction [Unknown]
  - Hepatic failure [Fatal]
  - Small intestinal haemorrhage [Fatal]
  - Pneumonitis [Unknown]
